FAERS Safety Report 6141737-6 (Version None)
Quarter: 2009Q2

REPORT INFORMATION
  Report Type: 
  Country: None (occurrence: None)
  Receive Date: 20090402
  Receipt Date: 20090327
  Transmission Date: 20091009
  Serious: Yes (Hospitalization)
  Sender: FDA-Public Use
  Company Number: ES-JNJFOC-20090306630

PATIENT
  Age: 92 Year
  Sex: Male

DRUGS (6)
  1. DURAGESIC-100 [Suspect]
     Route: 062
  2. DURAGESIC-100 [Suspect]
     Indication: METASTATIC PAIN
     Route: 062
  3. HALOPERIDOL [Interacting]
     Indication: DRUG USE FOR UNKNOWN INDICATION
     Route: 048
  4. CITALOPRAM [Interacting]
     Indication: DRUG USE FOR UNKNOWN INDICATION
     Route: 048
  5. ENALAPRIL [Interacting]
     Indication: BLOOD PRESSURE INCREASED
     Route: 048
  6. SEVREDOL [Interacting]
     Indication: METASTATIC PAIN
     Route: 048

REACTIONS (3)
  - CONFUSIONAL STATE [None]
  - DRUG INTERACTION [None]
  - HOSPITALISATION [None]
